FAERS Safety Report 9864011 (Version 1)
Quarter: 2014Q1

REPORT INFORMATION
  Report Type: Spontaneous
  Country: GB (occurrence: GB)
  Receive Date: 20140203
  Receipt Date: 20140203
  Transmission Date: 20141002
  Serious: Yes (Other)
  Sender: FDA-Public Use
  Company Number: PHHY2014GB010693

PATIENT
  Sex: Female

DRUGS (3)
  1. CICLOSPORIN [Suspect]
     Indication: IMMUNOSUPPRESSION
  2. AZATHIOPRINE [Suspect]
     Indication: IMMUNOSUPPRESSION
  3. NIFEDIPINE [Suspect]
     Indication: PROPHYLAXIS

REACTIONS (4)
  - Abdominal pain upper [Unknown]
  - Blood creatinine increased [Unknown]
  - Premature labour [Unknown]
  - Exposure during pregnancy [Unknown]
